FAERS Safety Report 9893792 (Version 1)
Quarter: 2014Q1

REPORT INFORMATION
  Report Type: Report from Study
  Country: NL (occurrence: NL)
  Receive Date: 20140213
  Receipt Date: 20140213
  Transmission Date: 20141002
  Serious: Yes (Death)
  Sender: FDA-Public Use
  Company Number: PHHY2014NL017271

PATIENT
  Sex: Male

DRUGS (5)
  1. ZOMETA [Suspect]
     Indication: PROSTATE CANCER METASTATIC
     Dosage: 4 MG PER 100 ML, 1 PER 4 WEEKS
     Route: 042
  2. ZOMETA [Suspect]
     Dosage: 4 MG PER 100 ML, 1 PER 4 WEEKS
     Route: 042
     Dates: start: 20130709
  3. ZOMETA [Suspect]
     Dosage: 4 MG PER 100 ML, 1 PER 4 WEEKS
     Route: 042
     Dates: start: 20131223
  4. ZOMETA [Suspect]
     Dosage: 4 MG PER 100 ML, 1 PER 4 WEEKS
     Route: 042
     Dates: start: 20140120
  5. ZOLEDRONIC ACID [Suspect]
     Dosage: UNK UKN, UNK

REACTIONS (1)
  - Myocardial infarction [Fatal]
